FAERS Safety Report 8129455-6 (Version None)
Quarter: 2012Q1

REPORT INFORMATION
  Report Type: 
  Country: None (occurrence: None)
  Receive Date: 20120210
  Receipt Date: 20120207
  Transmission Date: 20120608
  Serious: No
  Sender: FDA-Public Use
  Company Number: US-BAYER-2012-013557

PATIENT
  Sex: Female

DRUGS (4)
  1. ALEVE (CAPLET) [Suspect]
     Indication: HEADACHE
     Dosage: 2 TAB BID
     Dates: start: 20120206
  2. ATENOLOL [Concomitant]
  3. DIURETICS [Concomitant]
  4. MULTI-VITAMIN [Concomitant]

REACTIONS (1)
  - NO ADVERSE EVENT [None]
